FAERS Safety Report 16989444 (Version 1)
Quarter: 2019Q4

REPORT INFORMATION
  Report Type: Spontaneous
  Country: US (occurrence: US)
  Receive Date: 20191104
  Receipt Date: 20191104
  Transmission Date: 20200122
  Serious: No
  Sender: FDA-Public Use
  Company Number: US-PFIZER INC-2019471902

PATIENT
  Sex: Female

DRUGS (1)
  1. KERYDIN [Suspect]
     Active Substance: TAVABOROLE
     Indication: NAIL DISORDER
     Dosage: UNK
     Route: 061

REACTIONS (5)
  - Application site dryness [Unknown]
  - Application site exfoliation [Unknown]
  - Skin irritation [Unknown]
  - Application site swelling [Unknown]
  - Application site erythema [Unknown]
